FAERS Safety Report 19859004 (Version 1)
Quarter: 2021Q3

REPORT INFORMATION
  Report Type: Spontaneous
  Country: CA (occurrence: CA)
  Receive Date: 20210921
  Receipt Date: 20210921
  Transmission Date: 20211014
  Serious: Yes (Other)
  Sender: FDA-Public Use
  Company Number: CA-ROCHE-2912376

PATIENT
  Age: 62 Year
  Sex: Female
  Weight: 76 kg

DRUGS (3)
  1. IMMUNOGLOBULIN G HUMAN [Concomitant]
     Active Substance: HUMAN IMMUNOGLOBULIN G
  2. PREDNISONE. [Concomitant]
     Active Substance: PREDNISONE
  3. RITUXIMAB. [Suspect]
     Active Substance: RITUXIMAB
     Indication: GRANULOMATOSIS WITH POLYANGIITIS
     Route: 042

REACTIONS (5)
  - Reading disorder [Recovered/Resolved]
  - Off label use [Unknown]
  - Paraesthesia oral [Recovered/Resolved]
  - Lip swelling [Recovered/Resolved]
  - Paraesthesia [Recovered/Resolved]
